FAERS Safety Report 14519563 (Version 1)
Quarter: 2018Q1

REPORT INFORMATION
  Report Type: Spontaneous
  Country: FR (occurrence: FR)
  Receive Date: 20180212
  Receipt Date: 20180212
  Transmission Date: 20180509
  Serious: Yes (Hospitalization)
  Sender: FDA-Public Use
  Company Number: FR-SA-2018SA031680

PATIENT
  Age: 32 Year
  Sex: Female
  Weight: 89 kg

DRUGS (2)
  1. DUPHASTON [Suspect]
     Active Substance: DYDROGESTERONE
     Indication: INFERTILITY
     Route: 048
     Dates: start: 2017
  2. CLOMID [Suspect]
     Active Substance: CLOMIPHENE CITRATE
     Indication: CONTROLLED OVARIAN STIMULATION
     Route: 048
     Dates: start: 2017

REACTIONS (3)
  - Intracranial pressure increased [Not Recovered/Not Resolved]
  - Diplopia [Not Recovered/Not Resolved]
  - Papilloedema [Not Recovered/Not Resolved]

NARRATIVE: CASE EVENT DATE: 201711
